FAERS Safety Report 9871646 (Version 1)
Quarter: 2014Q1

REPORT INFORMATION
  Report Type: Spontaneous
  Country: BE (occurrence: BE)
  Receive Date: 20140205
  Receipt Date: 20140205
  Transmission Date: 20141002
  Serious: Yes (Other)
  Sender: FDA-Public Use
  Company Number: BE-AMGEN-BELSP2014006810

PATIENT
  Age: 55 Year
  Sex: Female
  Weight: 64 kg

DRUGS (3)
  1. PROLIA [Suspect]
     Indication: PROPHYLAXIS
     Dosage: UNK UNK, Q6MO
     Route: 065
     Dates: start: 2012
  2. L-THYROXINE                        /00068001/ [Concomitant]
  3. CRESTOR [Concomitant]

REACTIONS (1)
  - Osteonecrosis of jaw [Not Recovered/Not Resolved]
